FAERS Safety Report 11327501 (Version 4)
Quarter: 2015Q4

REPORT INFORMATION
  Report Type: Report from Study
  Country: US (occurrence: US)
  Receive Date: 20150731
  Receipt Date: 20151002
  Transmission Date: 20160304
  Serious: Yes (Hospitalization, Other)
  Sender: FDA-Public Use
  Company Number: US-ACTELION-A-NJ2014-102998

PATIENT
  Age: 67 Year
  Sex: Male

DRUGS (2)
  1. WARFARIN [Concomitant]
     Active Substance: WARFARIN
  2. VELETRI [Suspect]
     Active Substance: EPOPROSTENOL
     Indication: PULMONARY ARTERIAL HYPERTENSION
     Dosage: 8.5 NG/KG, PER MIN
     Route: 042
     Dates: start: 20140409

REACTIONS (10)
  - Device related infection [Unknown]
  - Lung neoplasm malignant [Unknown]
  - Dermatitis contact [Recovered/Resolved]
  - Catheter site rash [Unknown]
  - Catheter site pruritus [Unknown]
  - Catheter site discharge [Unknown]
  - Catheter site erythema [Unknown]
  - Catheter site infection [Unknown]
  - Catheter site warmth [Unknown]
  - Catheter site haemorrhage [Unknown]
